FAERS Safety Report 6303150-8 (Version None)
Quarter: 2009Q3

REPORT INFORMATION
  Report Type: 
  Country: None (occurrence: None)
  Receive Date: 20090810
  Receipt Date: 20090120
  Transmission Date: 20100115
  Serious: No
  Sender: FDA-Public Use
  Company Number: A0764329A

PATIENT
  Age: 53 Year
  Sex: Female

DRUGS (3)
  1. PAXIL CR [Suspect]
     Indication: DEPRESSION
     Dosage: 25MG PER DAY
     Route: 048
     Dates: start: 20040101
  2. WELLBUTRIN [Suspect]
     Indication: DEPRESSION
     Dosage: 300MG PER DAY
     Route: 048
     Dates: start: 20040101, end: 20081219
  3. SYNTHROID [Concomitant]

REACTIONS (1)
  - ABNORMAL BEHAVIOUR [None]
